FAERS Safety Report 7732967-8 (Version None)
Quarter: 2011Q3

REPORT INFORMATION
  Report Type: 
  Country: None (occurrence: None)
  Receive Date: 20110907
  Receipt Date: 20110831
  Transmission Date: 20111222
  Serious: Yes (Other)
  Sender: FDA-Public Use
  Company Number: BR-PFIZER INC-2011204467

PATIENT
  Age: 50 Year
  Sex: Female
  Weight: 66 kg

DRUGS (8)
  1. OMEPRAZOLE [Concomitant]
     Dosage: 20 MG IN FASTING
     Route: 048
     Dates: start: 20101119, end: 20101228
  2. BROMOPRIDE [Concomitant]
     Dosage: 10MG BEFORE MEALS
     Route: 048
     Dates: start: 20101229
  3. DIPIRONA [Concomitant]
     Dosage: 40 DROPS EVERY 4 HOURS
     Route: 048
     Dates: start: 20101228, end: 20110107
  4. TRAMADOL [Concomitant]
     Dosage: 50 MG, EVERY 6 HOURS
     Route: 048
     Dates: start: 20101228, end: 20110107
  5. ONDANSETRON [Concomitant]
     Dosage: 8 MG, EVERY 6 HOURS
     Route: 048
     Dates: start: 20101228, end: 20110107
  6. METFORMIN [Concomitant]
     Dosage: 850 MG, IN THE MORNING
     Route: 048
  7. SUTENT [Suspect]
     Indication: RENAL CELL CARCINOMA
     Dosage: 50 MG, 1X/DAY
     Route: 048
     Dates: start: 20101124
  8. BROMOPRIDE [Concomitant]
     Dosage: 10MG BEFORE MEALS
     Route: 048
     Dates: start: 20101104, end: 20101228

REACTIONS (11)
  - GINGIVAL DISORDER [None]
  - VOMITING [None]
  - BURNING SENSATION [None]
  - ABDOMINAL PAIN [None]
  - DYSGEUSIA [None]
  - NAUSEA [None]
  - MUCOSAL INFLAMMATION [None]
  - WEIGHT DECREASED [None]
  - SERUM FERRITIN INCREASED [None]
  - HAEMATEMESIS [None]
  - BLOOD THYROID STIMULATING HORMONE DECREASED [None]
